FAERS Safety Report 9155013 (Version 1)
Quarter: 2013Q1

REPORT INFORMATION
  Report Type: Report from Study
  Country: US (occurrence: US)
  Receive Date: 20130311
  Receipt Date: 20130311
  Transmission Date: 20140127
  Serious: No
  Sender: FDA-Public Use
  Company Number: US-ABBOTT-12P-163-0926531-00

PATIENT
  Age: 34 None
  Sex: Female
  Weight: 94.43 kg

DRUGS (6)
  1. LUPRON DEPOT 11.25 MG [Suspect]
     Indication: ENDOMETRIOSIS
     Route: 050
     Dates: start: 201203
  2. NORETHINDRONE [Suspect]
     Indication: MENSTRUAL DISORDER
     Dates: start: 201203, end: 201204
  3. SINGULAIR [Concomitant]
     Indication: PRODUCT USED FOR UNKNOWN INDICATION
  4. ABILIFY [Concomitant]
     Indication: PRODUCT USED FOR UNKNOWN INDICATION
  5. UNKNOWN MEDICATIONS [Concomitant]
     Indication: MIGRAINE
  6. ADVAIR [Concomitant]
     Indication: ASTHMA

REACTIONS (6)
  - Malaise [Not Recovered/Not Resolved]
  - Feeling hot [Not Recovered/Not Resolved]
  - Chills [Not Recovered/Not Resolved]
  - Erythema [Unknown]
  - Headache [Recovered/Resolved]
  - Weight increased [Not Recovered/Not Resolved]
